FAERS Safety Report 13369814 (Version 4)
Quarter: 2017Q2

REPORT INFORMATION
  Report Type: Report from Study
  Country: TR (occurrence: TR)
  Receive Date: 20170324
  Receipt Date: 20170629
  Transmission Date: 20170830
  Serious: Yes (Death, Life-Threatening, Hospitalization)
  Sender: FDA-Public Use
  Company Number: TR-PFIZER INC-2017069829

PATIENT
  Age: 64 Year
  Sex: Male
  Weight: 102 kg

DRUGS (8)
  1. PEMETREXED. [Suspect]
     Active Substance: PEMETREXED
     Dosage: UNK
  2. PEMETREXED. [Suspect]
     Active Substance: PEMETREXED
     Dosage: UNK
     Dates: end: 20170130
  3. CARBOPLATIN. [Suspect]
     Active Substance: CARBOPLATIN
     Dosage: UNK
  4. PEMETREXED. [Suspect]
     Active Substance: PEMETREXED
     Indication: NON-SMALL CELL LUNG CANCER
     Dosage: 1000 MG, UNK
     Route: 042
     Dates: start: 20170106
  5. CARBOPLATIN. [Suspect]
     Active Substance: CARBOPLATIN
     Dosage: UNK
  6. CARBOPLATIN. [Suspect]
     Active Substance: CARBOPLATIN
     Indication: NON-SMALL CELL LUNG CANCER
     Dosage: 400 MG, UNK
     Route: 042
     Dates: start: 20170106
  7. PEMETREXED. [Suspect]
     Active Substance: PEMETREXED
     Dosage: UNK
  8. CARBOPLATIN. [Suspect]
     Active Substance: CARBOPLATIN
     Dosage: UNK
     Dates: end: 20170130

REACTIONS (3)
  - Pneumonia [Unknown]
  - Febrile neutropenia [Not Recovered/Not Resolved]
  - Septic shock [Fatal]

NARRATIVE: CASE EVENT DATE: 20170206
